FAERS Safety Report 20772094 (Version 2)
Quarter: 2022Q2

REPORT INFORMATION
  Report Type: Spontaneous
  Country: US (occurrence: US)
  Receive Date: 20220502
  Receipt Date: 20220511
  Transmission Date: 20220720
  Serious: Yes (Hospitalization, Other)
  Sender: FDA-Public Use
  Company Number: US-JNJFOC-20220455891

PATIENT
  Age: 42 Year
  Sex: Female

DRUGS (3)
  1. OPSUMIT [Suspect]
     Active Substance: MACITENTAN
     Indication: Pulmonary arterial hypertension
     Route: 048
     Dates: start: 20220415
  2. TREPROSTINIL SODIUM [Suspect]
     Active Substance: TREPROSTINIL SODIUM
     Indication: Pulmonary arterial hypertension
     Route: 041
     Dates: start: 20220305
  3. TREPROSTINIL SODIUM [Suspect]
     Active Substance: TREPROSTINIL SODIUM
     Route: 041

REACTIONS (10)
  - Sepsis [Unknown]
  - Oedema peripheral [Unknown]
  - Device dislocation [Unknown]
  - Dyspnoea [Unknown]
  - Chills [Unknown]
  - Headache [Recovered/Resolved]
  - Back pain [Unknown]
  - Nasal congestion [Recovered/Resolved]
  - Cough [Recovered/Resolved]
  - Catheter site erythema [Recovering/Resolving]

NARRATIVE: CASE EVENT DATE: 20220101
